FAERS Safety Report 6504230-4 (Version None)
Quarter: 2009Q4

REPORT INFORMATION
  Report Type: 
  Country: None (occurrence: None)
  Receive Date: 20091217
  Receipt Date: 20091207
  Transmission Date: 20100525
  Serious: Yes (Hospitalization)
  Sender: FDA-Public Use
  Company Number: BE-ABBOTT-09P-013-0601628-00

PATIENT
  Sex: Male
  Weight: 84 kg

DRUGS (4)
  1. HUMIRA [Suspect]
     Indication: CROHN'S DISEASE
     Route: 058
     Dates: start: 20080407
  2. OMEPRAZOLE [Concomitant]
     Indication: OESOPHAGITIS
     Dates: start: 20070601
  3. LAMISIL [Concomitant]
     Indication: ONYCHOMYCOSIS
     Dates: start: 20090325
  4. IMURAN [Concomitant]
     Indication: DRUG USE FOR UNKNOWN INDICATION
     Dates: start: 20060915

REACTIONS (1)
  - SUBILEUS [None]
